FAERS Safety Report 5417894-3 (Version None)
Quarter: 2007Q3

REPORT INFORMATION
  Report Type: 
  Country: None (occurrence: None)
  Receive Date: 20070817
  Receipt Date: 20070806
  Transmission Date: 20080115
  Serious: Yes (Hospitalization)
  Sender: FDA-Public Use
  Company Number: US-JNJFOC-20070801350

PATIENT
  Sex: Male
  Weight: 102.97 kg

DRUGS (2)
  1. REMICADE [Suspect]
     Indication: PSORIASIS
     Route: 042
  2. CLONAZEPAM [Concomitant]
     Indication: SLEEP DISORDER

REACTIONS (7)
  - ARTHRALGIA [None]
  - BLOOD PRESSURE INCREASED [None]
  - HEART RATE INCREASED [None]
  - MUSCULAR WEAKNESS [None]
  - PNEUMONIA [None]
  - PYREXIA [None]
  - SWELLING [None]
